FAERS Safety Report 17274465 (Version 5)
Quarter: 2020Q1

REPORT INFORMATION
  Report Type: Spontaneous
  Country: US (occurrence: US)
  Receive Date: 20200115
  Receipt Date: 20200330
  Transmission Date: 20200409
  Serious: No
  Sender: FDA-Public Use
  Company Number: US-DSJP-DSU-2020-100655

PATIENT

DRUGS (2)
  1. TURALIO [Suspect]
     Active Substance: PEXIDARTINIB HYDROCHLORIDE
     Indication: SYNOVITIS
     Dosage: 400 MG, BID
     Route: 048
     Dates: start: 20191219
  2. TURALIO [Suspect]
     Active Substance: PEXIDARTINIB HYDROCHLORIDE
     Dosage: 400 MG, BID
     Route: 048
     Dates: start: 20200104

REACTIONS (9)
  - Malaise [Not Recovered/Not Resolved]
  - Eating disorder [Recovering/Resolving]
  - Prothrombin time prolonged [Recovering/Resolving]
  - Pharyngeal paraesthesia [Recovered/Resolved]
  - Ill-defined disorder [Unknown]
  - Alopecia [Unknown]
  - Product dose omission [Not Recovered/Not Resolved]
  - Intentional product misuse [Unknown]
  - Hair colour changes [Unknown]

NARRATIVE: CASE EVENT DATE: 202001
